FAERS Safety Report 19269139 (Version 2)
Quarter: 2021Q2

REPORT INFORMATION
  Report Type: Spontaneous
  Country: US (occurrence: US)
  Receive Date: 20210518
  Receipt Date: 20210604
  Transmission Date: 20210717
  Serious: Yes (Other)
  Sender: FDA-Public Use
  Company Number: US-AMNEAL PHARMACEUTICALS-2021-AMRX-01653

PATIENT
  Age: 61 Year
  Sex: Female

DRUGS (1)
  1. ADRENACLICK [Suspect]
     Active Substance: EPINEPHRINE
     Indication: PRODUCT USED FOR UNKNOWN INDICATION
     Dosage: UNK
     Route: 065

REACTIONS (16)
  - Electrocardiogram QT prolonged [Unknown]
  - Multi-organ disorder [Unknown]
  - Alopecia [Unknown]
  - Ocular icterus [Unknown]
  - Fluid retention [Unknown]
  - Muscle spasms [Unknown]
  - Neurological symptom [Unknown]
  - Hepatic enzyme abnormal [Unknown]
  - Migraine [Unknown]
  - Erythema [Unknown]
  - Cerebrovascular accident [Unknown]
  - Gastrointestinal disorder [Unknown]
  - Dyspnoea [Unknown]
  - Drug ineffective [Unknown]
  - Vomiting [Unknown]
  - Visual impairment [Unknown]
